FAERS Safety Report 20695681 (Version 1)
Quarter: 2022Q2

REPORT INFORMATION
  Report Type: Spontaneous
  Country: US (occurrence: US)
  Receive Date: 20220411
  Receipt Date: 20220411
  Transmission Date: 20220721
  Serious: Yes (Hospitalization)
  Sender: FDA-Public Use
  Company Number: US-BIOVITRUM-2022US03873

PATIENT
  Sex: Female

DRUGS (10)
  1. SYNAGIS [Suspect]
     Active Substance: PALIVIZUMAB
     Indication: Antiviral prophylaxis
     Route: 030
     Dates: start: 20220202
  2. SYNAGIS [Suspect]
     Active Substance: PALIVIZUMAB
     Indication: Heart transplant
     Route: 030
     Dates: start: 202201
  3. TACROLIMUS [Concomitant]
     Active Substance: TACROLIMUS
  4. DIURIL [Concomitant]
     Active Substance: CHLOROTHIAZIDE
  5. ACYCLOVIR [Concomitant]
     Active Substance: ACYCLOVIR
  6. BUMEX [Concomitant]
     Active Substance: BUMETANIDE
  7. SULFAMETHOXAZOLE [Concomitant]
     Active Substance: SULFAMETHOXAZOLE
  8. SPIRONOLACTONE [Concomitant]
     Active Substance: SPIRONOLACTONE
  9. MYCOPHENOLIC ACID [Concomitant]
     Active Substance: MYCOPHENOLIC ACID
  10. PRAVASTATIN SODIUM [Concomitant]
     Active Substance: PRAVASTATIN SODIUM

REACTIONS (2)
  - Gastrointestinal disorder [Unknown]
  - Feeding disorder [Unknown]
